FAERS Safety Report 9012197 (Version 1)
Quarter: 2013Q1

REPORT INFORMATION
  Report Type: Spontaneous
  Country: US (occurrence: US)
  Receive Date: 20130114
  Receipt Date: 20130114
  Transmission Date: 20140127
  Serious: Yes (Other)
  Sender: FDA-Public Use
  Company Number: US-009507513-1301USA001864

PATIENT
  Age: 68 Year
  Sex: Female

DRUGS (7)
  1. MONTELUKAST SODIUM [Suspect]
     Indication: POLYP
  2. CARDIZEM [Concomitant]
     Indication: ALLERGIC SINUSITIS
  3. PREDNISONE [Suspect]
     Indication: ASTHMA
  4. BUDESONIDE [Suspect]
     Indication: GLAUCOMA
  5. TRIAMCINOLONE ACETONIDE [Suspect]
     Indication: ILL-DEFINED DISORDER
     Dosage: RESPIRATORY (INHALATION)
  6. ZITHROMAX [Suspect]
     Indication: SINUSITIS
     Route: 048
  7. ZYRTEC [Suspect]
     Dosage: 10 MG, 1 IN 1 D
     Route: 048

REACTIONS (9)
  - Tachycardia [Unknown]
  - Sinus disorder [Unknown]
  - Sinus congestion [Unknown]
  - Rash [Unknown]
  - Procedural complication [Unknown]
  - Glaucoma [Unknown]
  - Dry throat [Unknown]
  - Drug interaction [Unknown]
  - Drug ineffective [Unknown]
